FAERS Safety Report 11749709 (Version 1)
Quarter: 2015Q4

REPORT INFORMATION
  Report Type: Spontaneous
  Country: US (occurrence: None)
  Receive Date: 20151117
  Receipt Date: 20151117
  Transmission Date: 20160304
  Serious: Yes (Hospitalization, Disabling)
  Sender: FDA-Public Use
  Company Number: None

PATIENT
  Age: 24 Year
  Sex: Female
  Weight: 54.43 kg

DRUGS (21)
  1. MIDAZOLAM [Suspect]
     Active Substance: MIDAZOLAM\MIDAZOLAM HYDROCHLORIDE
     Indication: SURGERY
     Route: 042
     Dates: start: 20131111
  2. MAGNESIUM [Concomitant]
     Active Substance: MAGNESIUM
  3. BARLEAN^S GREENS [Concomitant]
  4. OLIVE LEAF EXTRACT [Concomitant]
  5. LIDOCAINE. [Suspect]
     Active Substance: LIDOCAINE
  6. ONDANSETRON [Suspect]
     Active Substance: ONDANSETRON
  7. PROPOFOL. [Suspect]
     Active Substance: PROPOFOL
  8. PLANT PROTEIN DRINK BLEND [Concomitant]
  9. L-TRYPTOPHAN [Concomitant]
     Active Substance: TRYPTOPHAN
  10. CODEINE [Suspect]
     Active Substance: CODEINE
  11. GAPS DIET (ANTI-INFLAMMATORY, SUPPORTS DIGESTION, DISCOURAGES PARASITES) [Concomitant]
  12. CALCIUM [Concomitant]
     Active Substance: CALCIUM
  13. PRIMROSE OIL [Concomitant]
  14. FISH OIL [Concomitant]
     Active Substance: FISH OIL
  15. MULTI VITAMIN [Concomitant]
     Active Substance: VITAMINS
  16. VITAMIN C+ BIOFLAVONOIDS FOODS WITH PROBIOTICS [Concomitant]
  17. FENTANYL. [Suspect]
     Active Substance: FENTANYL
     Indication: GENERAL ANAESTHESIA
     Route: 042
     Dates: start: 20151111
  18. ZINC PICOLINATE [Concomitant]
     Active Substance: ZINC PICOLINATE
  19. PROBIOTICS [Concomitant]
     Active Substance: PROBIOTICS NOS
  20. HYDROCHLOROTHIAZIDE AND LISINOPRIL [Concomitant]
     Active Substance: HYDROCHLOROTHIAZIDE\LISINOPRIL
  21. GINGER ROOT [Concomitant]

REACTIONS (43)
  - Chills [None]
  - Hypopnoea [None]
  - Palpitations [None]
  - Hepatomegaly [None]
  - Hunger [None]
  - Infection parasitic [None]
  - Dyspepsia [None]
  - Oropharyngeal pain [None]
  - Pain [None]
  - Heart rate irregular [None]
  - Gait disturbance [None]
  - Mood altered [None]
  - Diarrhoea [None]
  - Anxiety [None]
  - Pulmonary mass [None]
  - Lactobacillus infection [None]
  - Immunodeficiency [None]
  - Pyrexia [None]
  - Chest pain [None]
  - Gastrointestinal disorder [None]
  - Osteoporosis [None]
  - Muscle tightness [None]
  - Disturbance in attention [None]
  - Mental impairment [None]
  - Executive dysfunction [None]
  - Cachexia [None]
  - Dyspnoea [None]
  - Speech disorder [None]
  - Abnormal behaviour [None]
  - Fatigue [None]
  - Somnolence [None]
  - Depression [None]
  - Chest discomfort [None]
  - Myalgia [None]
  - Sensory disturbance [None]
  - Joint stiffness [None]
  - Tremor [None]
  - Maternal exposure during delivery [None]
  - Confusional state [None]
  - Asthenia [None]
  - Constipation [None]
  - Restlessness [None]
  - Post-traumatic stress disorder [None]
